FAERS Safety Report 22660337 (Version 1)
Quarter: 2023Q2

REPORT INFORMATION
  Report Type: Report from Study
  Country: US (occurrence: US)
  Receive Date: 20230630
  Receipt Date: 20230630
  Transmission Date: 20230721
  Serious: No
  Sender: FDA-Public Use
  Company Number: US-GUERBET / LLC-US-20230029

PATIENT

DRUGS (2)
  1. LIPIODOL [Suspect]
     Active Substance: ETHIODIZED OIL
     Indication: Therapeutic embolisation
     Dosage: LIPIODOL IN MIXTURE WITH NBCA GLUE DILUTED IN A RATIO BETWEEN 1:1 AND 1:4.
  2. ENBUCRILATE [Suspect]
     Active Substance: ENBUCRILATE
     Indication: Therapeutic embolisation
     Dosage: LIPIODOL IN MIXTURE WITH NBCA GLUE DILUTED IN A RATIO BETWEEN 1:1 AND 1:4.

REACTIONS (2)
  - Lymphoedema [Unknown]
  - Product use in unapproved indication [Unknown]
